FAERS Safety Report 14916379 (Version 1)
Quarter: 2018Q2

REPORT INFORMATION
  Report Type: Spontaneous
  Country: TH (occurrence: TH)
  Receive Date: 20180519
  Receipt Date: 20180519
  Transmission Date: 20180711
  Serious: Yes (Other)
  Sender: FDA-Public Use
  Company Number: TH-MANKIND-000060

PATIENT
  Age: 10 Year
  Sex: Male

DRUGS (1)
  1. RISPERIDONE. [Suspect]
     Active Substance: RISPERIDONE
     Indication: AUTISM SPECTRUM DISORDER
     Dosage: STARTED WITH 0.25 MG DAILY AND INCREASED UP TO 1.25 MG DAILY
     Route: 048

REACTIONS (2)
  - Erection increased [Recovered/Resolved]
  - Painful erection [Recovered/Resolved]
